FAERS Safety Report 6460272-9 (Version None)
Quarter: 2009Q4

REPORT INFORMATION
  Report Type: 
  Country: None (occurrence: None)
  Receive Date: 20091130
  Receipt Date: 20091117
  Transmission Date: 20100525
  Serious: Yes (Hospitalization)
  Sender: FDA-Public Use
  Company Number: PHHY2009FR51452

PATIENT
  Age: 51 Year
  Sex: Male

DRUGS (11)
  1. VOLTAREN [Suspect]
     Indication: OSTEOARTHRITIS
     Dosage: UNK
     Route: 048
  2. RAMIPRIL [Suspect]
     Indication: HYPERTENSION
     Dosage: 10 MG, QD
  3. FUROSEMIDE [Suspect]
     Indication: HYPERTENSION
  4. LANSOPRAZOLE [Concomitant]
     Dosage: 30 MG, QD
  5. KALEORID LP [Concomitant]
     Dosage: 1000 MG, QD
  6. DEPAKINE CHRONO [Concomitant]
     Dosage: 1500 MG, BID
  7. ZOPICLONE [Concomitant]
     Dosage: UNK
  8. ATENOLOL [Concomitant]
     Dosage: 50 MG, QD
  9. SPIRONOLACTONE [Concomitant]
     Dosage: 50 MG, QD
  10. EQUANIL [Concomitant]
     Dosage: 400 MG, QD
  11. ALLOPURINOL [Concomitant]
     Dosage: 200 MG, QD

REACTIONS (8)
  - ASTHENIA [None]
  - BRADYCARDIA [None]
  - HYPERCREATININAEMIA [None]
  - HYPERKALAEMIA [None]
  - HYPERURICAEMIA [None]
  - HYPONATRAEMIA [None]
  - MUSCULAR WEAKNESS [None]
  - RENAL FAILURE ACUTE [None]
